FAERS Safety Report 7453917-8 (Version None)
Quarter: 2011Q2

REPORT INFORMATION
  Report Type: 
  Country: None (occurrence: None)
  Receive Date: 20110502
  Receipt Date: 20110422
  Transmission Date: 20111010
  Serious: Yes (Death, Life-Threatening, Hospitalization)
  Sender: FDA-Public Use
  Company Number: US-BAYER-2011-035164

PATIENT
  Sex: Male

DRUGS (2)
  1. COUMADIN [Concomitant]
  2. AVELOX [Suspect]
     Indication: PNEUMONIA
     Dosage: UNK
     Dates: start: 20100101, end: 20100101

REACTIONS (2)
  - COAGULOPATHY [None]
  - GASTROINTESTINAL DISORDER [None]
